FAERS Safety Report 7578680-1 (Version None)
Quarter: 2011Q2

REPORT INFORMATION
  Report Type: 
  Country: None (occurrence: None)
  Receive Date: 20110628
  Receipt Date: 20110621
  Transmission Date: 20111010
  Serious: Yes (Death, Life-Threatening)
  Sender: FDA-Public Use
  Company Number: DK-TEVA-287525ISR

PATIENT
  Sex: Female
  Weight: 69 kg

DRUGS (4)
  1. ONDANSETRON [Suspect]
     Indication: NAUSEA
     Dosage: 24 MILLIGRAM;
     Route: 048
     Dates: start: 20110512
  2. TEMODAL [Suspect]
     Indication: NEUROENDOCRINE TUMOUR
     Dosage: DOSIS: 320 MG P.O DGL. I 5 DAGE, HVER 4. UGE
     Route: 048
     Dates: start: 20110412, end: 20110515
  3. PREDNISOLONE [Concomitant]
     Indication: NAUSEA
     Dates: start: 20110512
  4. MORFIN ^DAK^ [Concomitant]
     Indication: PAIN

REACTIONS (1)
  - LARGE INTESTINE PERFORATION [None]
